FAERS Safety Report 4374031-4 (Version None)
Quarter: 2004Q2

REPORT INFORMATION
  Report Type: 
  Country: None (occurrence: None)
  Receive Date: 20040607
  Receipt Date: 20031216
  Transmission Date: 20050107
  Serious: No
  Sender: FDA-Public Use
  Company Number: PHNU2003DE04455

PATIENT
  Age: 48 Year
  Sex: Male
  Weight: 70 kg

DRUGS (1)
  1. LAMISIL [Suspect]
     Indication: ONYCHOMYCOSIS
     Dosage: 250 MG, QD
     Route: 048
     Dates: start: 20030801, end: 20031020

REACTIONS (2)
  - VISION BLURRED [None]
  - VISUAL DISTURBANCE [None]
